FAERS Safety Report 26179115 (Version 1)
Quarter: 2025Q4

REPORT INFORMATION
  Report Type: Spontaneous
  Country: US (occurrence: US)
  Receive Date: 20251219
  Receipt Date: 20251219
  Transmission Date: 20260117
  Serious: Yes (Hospitalization, Other)
  Sender: RANBAXY
  Company Number: US-SUN PHARMACEUTICAL INDUSTRIES INC-2025R1-542518

PATIENT
  Age: 77 Year
  Sex: Male

DRUGS (4)
  1. FLUOROURACIL [Suspect]
     Active Substance: FLUOROURACIL
     Indication: Non-small cell lung cancer
     Dosage: VIA CONTINUOUS PUMP
     Route: 065
  2. LEUCOVORIN CALCIUM [Suspect]
     Active Substance: LEUCOVORIN CALCIUM
     Indication: Non-small cell lung cancer
     Dosage: UNKNOWN
     Route: 065
  3. OXALIPLATIN [Suspect]
     Active Substance: OXALIPLATIN
     Indication: Non-small cell lung cancer
     Dosage: UNKNOWN
     Route: 065
  4. PEMBROLIZUMAB [Suspect]
     Active Substance: PEMBROLIZUMAB
     Indication: Non-small cell lung cancer
     Dosage: UNKNOWN
     Route: 065

REACTIONS (3)
  - Mental status changes [Recovered/Resolved]
  - Hyperammonaemia [Recovering/Resolving]
  - Metabolic encephalopathy [Recovering/Resolving]
